FAERS Safety Report 7916622-7 (Version None)
Quarter: 2011Q4

REPORT INFORMATION
  Report Type: 
  Country: None (occurrence: None)
  Receive Date: 20111116
  Receipt Date: 20111114
  Transmission Date: 20120403
  Serious: No
  Sender: FDA-Public Use
  Company Number: US-PFIZER INC-2011261421

PATIENT
  Sex: Female

DRUGS (2)
  1. PRISTIQ [Suspect]
     Dosage: UNK, ONCE A DAY
  2. SEROQUEL [Suspect]
     Dosage: UNK

REACTIONS (3)
  - GASTRIC DISORDER [None]
  - HEADACHE [None]
  - DIZZINESS [None]
